FAERS Safety Report 11814369 (Version 1)
Quarter: 2015Q4

REPORT INFORMATION
  Report Type: Spontaneous
  Country: CY (occurrence: CY)
  Receive Date: 20151209
  Receipt Date: 20151209
  Transmission Date: 20160305
  Serious: Yes (Other)
  Sender: FDA-Public Use
  Company Number: CY-BAYER-2015-479074

PATIENT
  Age: 40 Year
  Sex: Male

DRUGS (2)
  1. ASPIRIN. [Suspect]
     Active Substance: ASPIRIN
  2. TICAGRELOR [Suspect]
     Active Substance: TICAGRELOR

REACTIONS (1)
  - Cardiac ventricular thrombosis [Unknown]
